FAERS Safety Report 4498308-7 (Version None)
Quarter: 2004Q4

REPORT INFORMATION
  Report Type: 
  Country: None (occurrence: None)
  Receive Date: 20041109
  Receipt Date: 20041109
  Transmission Date: 20050328
  Serious: Yes (Disabling)
  Sender: FDA-Public Use
  Company Number: None

PATIENT
  Age: 53 Year
  Sex: Male
  Weight: 90.7194 kg

DRUGS (8)
  1. ZETIA [Suspect]
     Indication: HYPERLIPIDAEMIA
     Dosage: PO ONCE DAILY ORAL
     Route: 048
     Dates: start: 20041008, end: 20041019
  2. CRESTOR [Concomitant]
  3. FOLTX [Concomitant]
  4. NIASPAN [Concomitant]
  5. PROTONIX [Concomitant]
  6. ASPIRIN [Concomitant]
  7. FISH OIL [Concomitant]
  8. B2 [Concomitant]

REACTIONS (2)
  - ECZEMA [None]
  - EOSINOPHILIA [None]
